FAERS Safety Report 16856515 (Version 1)
Quarter: 2019Q3

REPORT INFORMATION
  Report Type: Spontaneous
  Country: US (occurrence: US)
  Receive Date: 20190926
  Receipt Date: 20190926
  Transmission Date: 20191005
  Serious: No
  Sender: FDA-Public Use
  Company Number: US-ASSERTIO THERAPEUTICS, INC.-US-2016DEP007540

PATIENT
  Sex: Female

DRUGS (4)
  1. GRALISE [Suspect]
     Active Substance: GABAPENTIN
     Indication: NEURALGIA
     Dosage: 900 MG, QD (300 MG IN THE MORNING, 600 MG IN THE NIGHT)
     Dates: start: 201903
  2. GRALISE [Suspect]
     Active Substance: GABAPENTIN
     Dosage: DF
     Dates: start: 201407
  3. GRALISE [Suspect]
     Active Substance: GABAPENTIN
     Dosage: DF
     Dates: start: 201407
  4. GRALISE [Suspect]
     Active Substance: GABAPENTIN
     Dosage: DF
     Dates: start: 201407

REACTIONS (2)
  - Product use in unapproved indication [Unknown]
  - Drug titration error [Unknown]

NARRATIVE: CASE EVENT DATE: 201407
